FAERS Safety Report 7820686-9 (Version None)
Quarter: 2011Q4

REPORT INFORMATION
  Report Type: 
  Country: None (occurrence: None)
  Receive Date: 20111013
  Receipt Date: 20110929
  Transmission Date: 20120403
  Serious: Yes (Hospitalization, Disabling, Other)
  Sender: FDA-Public Use
  Company Number: 2011MA013060

PATIENT
  Age: 44 Year
  Sex: Female

DRUGS (4)
  1. CAPECITABINE [Suspect]
     Indication: COLORECTAL CANCER
     Dosage: 1500 MG;BID
     Dates: start: 20090930, end: 20091103
  2. AROTINOLOL (AROTINOLOL) [Suspect]
     Dates: start: 20091001
  3. VALPROIC ACID [Suspect]
     Indication: EPILEPSY
  4. PHENYTOIN [Suspect]
     Indication: EPILEPSY
     Dosage: 0.625 G;BID
     Dates: end: 20091101

REACTIONS (8)
  - TREMOR [None]
  - GAIT DISTURBANCE [None]
  - DIZZINESS [None]
  - HYPOAESTHESIA [None]
  - DYSARTHRIA [None]
  - TOXICITY TO VARIOUS AGENTS [None]
  - MOVEMENT DISORDER [None]
  - NYSTAGMUS [None]
